FAERS Safety Report 5087561-7 (Version None)
Quarter: 2006Q3

REPORT INFORMATION
  Report Type: 
  Country: None (occurrence: None)
  Receive Date: 20060821
  Receipt Date: 20060810
  Transmission Date: 20061208
  Serious: Yes (Other)
  Sender: FDA-Public Use
  Company Number: 2006097670

PATIENT
  Age: 25 Year
  Sex: Female
  Weight: 63.5036 kg

DRUGS (6)
  1. ZOLOFT [Suspect]
     Indication: DEPRESSION
     Dosage: 100 MG (100 MG, 1 IN 1 D)
     Dates: start: 20060712
  2. LEVOXYL [Concomitant]
  3. IBUPROFEN [Concomitant]
  4. ZITHROMAX [Concomitant]
  5. ADVAIR DISKUS 100/50 [Concomitant]
  6. XOPENEX [Concomitant]

REACTIONS (1)
  - DRUG SCREEN POSITIVE [None]
